FAERS Safety Report 9783416 (Version 3)
Quarter: 2014Q1

REPORT INFORMATION
  Report Type: Spontaneous
  Country: IT (occurrence: IT)
  Receive Date: 20131226
  Receipt Date: 20140212
  Transmission Date: 20141002
  Serious: Yes (Hospitalization)
  Sender: FDA-Public Use
  Company Number: IT-SA-2013SA132176

PATIENT
  Age: 82 Year
  Sex: Female

DRUGS (11)
  1. CLEXANE [Suspect]
     Indication: PERIPHERAL ARTERIAL OCCLUSIVE DISEASE
     Dosage: DOSE-4 IU IN MILLION DAILY
     Route: 058
     Dates: start: 20131011, end: 20131022
  2. CARDIOASPIRIN [Interacting]
     Indication: PERIPHERAL ARTERIAL OCCLUSIVE DISEASE
     Route: 048
     Dates: start: 20120115, end: 20131022
  3. BISOPROLOL HEMIFUMARATE [Concomitant]
  4. FUROSEMIDE [Concomitant]
  5. PANTOPRAZOLE [Concomitant]
  6. ADENURIC [Concomitant]
  7. ZESTORETIC [Concomitant]
  8. NORMOTHEN [Concomitant]
  9. ADALAT [Concomitant]
  10. DIBASE [Concomitant]
  11. DELTACORTENE [Concomitant]

REACTIONS (3)
  - Intestinal perforation [Recovering/Resolving]
  - Drug interaction [Unknown]
  - Rectal haemorrhage [Recovering/Resolving]
